FAERS Safety Report 6870170-4 (Version None)
Quarter: 2010Q3

REPORT INFORMATION
  Report Type: 
  Country: None (occurrence: None)
  Receive Date: 20100721
  Receipt Date: 20100715
  Transmission Date: 20110219
  Serious: Yes (Other)
  Sender: FDA-Public Use
  Company Number: RB-11520-2010

PATIENT
  Age: 37 Year
  Sex: Male

DRUGS (6)
  1. SUBOXONE [Suspect]
     Indication: PAIN
     Dosage: (36 MG SUBLINGUAL), (24 MG SUBLINGUAL)
     Route: 060
     Dates: end: 20070101
  2. SUBOXONE [Suspect]
     Indication: PAIN
     Dosage: (36 MG SUBLINGUAL), (24 MG SUBLINGUAL)
     Route: 060
     Dates: start: 20100607
  3. SUBUTEX [Suspect]
     Indication: PAIN
     Dosage: (40 MG SUBLINGUAL)
     Route: 060
     Dates: end: 20100606
  4. PROVIGIL [Suspect]
     Indication: ASTHENIA
  5. REMERON [Concomitant]
  6. PREVACID [Concomitant]

REACTIONS (3)
  - BLOOD TESTOSTERONE DECREASED [None]
  - CONVULSION [None]
  - HEPATITIS C [None]
